FAERS Safety Report 8371271-4 (Version None)
Quarter: 2012Q2

REPORT INFORMATION
  Report Type: 
  Country: None (occurrence: None)
  Receive Date: 20120518
  Receipt Date: 20120503
  Transmission Date: 20120825
  Serious: Yes (Hospitalization)
  Sender: FDA-Public Use
  Company Number: AT-VERTEX PHARMACEUTICALS INC.-000000000000000510

PATIENT
  Sex: Female

DRUGS (4)
  1. TELAPREVIR [Suspect]
     Indication: HEPATITIS C
     Dosage: DOSAGE FORM: TABLET
     Route: 065
     Dates: start: 20120321, end: 20120509
  2. PEGINTERFERON ALFA [Concomitant]
     Indication: HEPATITIS C
     Dosage: DOSAGE FORM: UNKNOWN
     Route: 065
     Dates: start: 20120321
  3. ACE INHIBITORS [Concomitant]
     Dosage: DOSAGE FORM: UNKNOWN
     Route: 065
  4. RIBAVIRIN [Concomitant]
     Indication: HEPATITIS C
     Dosage: DOSAGE FORM: UNKNOWN
     Route: 065
     Dates: start: 20120321

REACTIONS (4)
  - CIRCULATORY COLLAPSE [None]
  - HYPOTENSION [None]
  - EPISTAXIS [None]
  - RENAL FUNCTION TEST ABNORMAL [None]
